FAERS Safety Report 9041118 (Version 1)
Quarter: 2013Q1

REPORT INFORMATION
  Report Type: Spontaneous
  Country: US (occurrence: None)
  Receive Date: 20130114
  Receipt Date: 20130114
  Transmission Date: 20140127
  Serious: Yes (Other)
  Sender: FDA-Public Use
  Company Number: 89962

PATIENT
  Sex: Male

DRUGS (1)
  1. HYPROMELLOSE [Suspect]
     Dosage: 2X, PER EYE

REACTIONS (3)
  - Eye haemorrhage [None]
  - Ocular vascular disorder [None]
  - Lens disorder [None]
